FAERS Safety Report 6141256-7 (Version None)
Quarter: 2009Q2

REPORT INFORMATION
  Report Type: 
  Country: None (occurrence: None)
  Receive Date: 20090402
  Receipt Date: 20090325
  Transmission Date: 20091009
  Serious: Yes (Hospitalization)
  Sender: FDA-Public Use
  Company Number: FR-WATSON-2009-02003

PATIENT
  Age: 62 Year
  Sex: Female

DRUGS (2)
  1. OMEPRAZOLE (WATSON LABORATORIES) [Suspect]
     Indication: HIATUS HERNIA
     Dosage: 20 MG, DAILY
  2. ESOMEPRAZOLE MAGNESIUM [Suspect]
     Indication: HIATUS HERNIA
     Dosage: 40 MG, DAILY

REACTIONS (3)
  - GIARDIASIS [None]
  - HYPOMAGNESAEMIA [None]
  - HYPOPARATHYROIDISM SECONDARY [None]
